FAERS Safety Report 8125609-3 (Version None)
Quarter: 2012Q1

REPORT INFORMATION
  Report Type: 
  Country: None (occurrence: None)
  Receive Date: 20120209
  Receipt Date: 20120203
  Transmission Date: 20120608
  Serious: Yes (Other)
  Sender: FDA-Public Use
  Company Number: US-PFIZER INC-2011203101

PATIENT
  Sex: Male

DRUGS (1)
  1. CHANTIX [Suspect]
     Indication: SMOKING CESSATION THERAPY
     Dosage: 0.5 MG, UNK
     Dates: start: 20091201, end: 20100201

REACTIONS (9)
  - ANXIETY [None]
  - ANGER [None]
  - DEPRESSION [None]
  - SLEEP DISORDER [None]
  - NIGHTMARE [None]
  - ABNORMAL BEHAVIOUR [None]
  - IRRITABILITY [None]
  - MARITAL PROBLEM [None]
  - AGGRESSION [None]
